FAERS Safety Report 16343737 (Version 1)
Quarter: 2019Q2

REPORT INFORMATION
  Report Type: Spontaneous
  Country: US (occurrence: US)
  Receive Date: 20190522
  Receipt Date: 20190522
  Transmission Date: 20190711
  Serious: No
  Sender: FDA-Public Use
  Company Number: US-PFIZER INC-2019214595

PATIENT
  Age: 62 Year
  Sex: Male
  Weight: 72.57 kg

DRUGS (1)
  1. GABAPENTIN. [Suspect]
     Active Substance: GABAPENTIN
     Indication: DIABETIC NEUROPATHY
     Dosage: UNK
     Dates: start: 201901

REACTIONS (3)
  - Loss of personal independence in daily activities [Recovered/Resolved]
  - Memory impairment [Recovered/Resolved]
  - Drug ineffective [Unknown]
